FAERS Safety Report 23938064 (Version 3)
Quarter: 2024Q3

REPORT INFORMATION
  Report Type: Spontaneous
  Country: US (occurrence: US)
  Receive Date: 20240604
  Receipt Date: 20240702
  Transmission Date: 20241016
  Serious: Yes (Other)
  Sender: VIFOR
  Company Number: US-Vifor (International) Inc.-VIT-2024-04387

PATIENT
  Age: 55 Year
  Sex: Male
  Weight: 76 kg

DRUGS (2)
  1. MIRCERA [Suspect]
     Active Substance: METHOXY POLYETHYLENE GLYCOL-EPOETIN BETA
     Indication: Nephrogenic anaemia
     Dosage: ON 19-APR-2024, DOSE NUMBER: 4 AND DOSE CATEGORY: DOSE 4.
     Dates: start: 20240124, end: 20240419
  2. HECTOROL [Concomitant]
     Active Substance: DOXERCALCIFEROL

REACTIONS (4)
  - Haemodialysis [Unknown]
  - Drug hypersensitivity [Recovered/Resolved]
  - Feeling abnormal [Recovered/Resolved]
  - Hypotension [Recovered/Resolved]

NARRATIVE: CASE EVENT DATE: 20240101
